FAERS Safety Report 6638458-X (Version None)
Quarter: 2010Q1

REPORT INFORMATION
  Report Type: 
  Country: None (occurrence: None)
  Receive Date: 20100316
  Receipt Date: 20100316
  Transmission Date: 20100710
  Serious: Yes (Hospitalization)
  Sender: FDA-Public Use
  Company Number: None

PATIENT
  Age: 50 Year
  Sex: Female
  Weight: 79.3795 kg

DRUGS (1)
  1. CYMBALTA [Suspect]
     Indication: DEPRESSION
     Dosage: ONCE DAILY 1 DAILY
     Dates: start: 20070615, end: 20100221

REACTIONS (4)
  - DEPRESSION [None]
  - FEELINGS OF WORTHLESSNESS [None]
  - OVERDOSE [None]
  - SUICIDE ATTEMPT [None]
